FAERS Safety Report 6293417-4 (Version None)
Quarter: 2009Q3

REPORT INFORMATION
  Report Type: 
  Country: None (occurrence: None)
  Receive Date: 20090801
  Receipt Date: 20090721
  Transmission Date: 20100115
  Serious: Yes (Other)
  Sender: FDA-Public Use
  Company Number: GB-JNJFOC-20090707033

PATIENT
  Sex: Male

DRUGS (2)
  1. INFLIXIMAB [Suspect]
     Indication: VASCULITIS
     Route: 042
  2. AZATHIOPRINE [Concomitant]
     Indication: VASCULITIS

REACTIONS (2)
  - ONYCHOMYCOSIS [None]
  - PULMONARY HYPERTENSION [None]
